FAERS Safety Report 5446824-3 (Version None)
Quarter: 2007Q3

REPORT INFORMATION
  Report Type: 
  Country: None (occurrence: None)
  Receive Date: 20070907
  Receipt Date: 20070829
  Transmission Date: 20080115
  Serious: Yes (Disabling)
  Sender: FDA-Public Use
  Company Number: GB-PFIZER INC-2007072682

PATIENT
  Age: 55 Year
  Sex: Male
  Weight: 71.8 kg

DRUGS (1)
  1. VARENICLINE TABLETS [Suspect]
     Indication: SMOKING CESSATION THERAPY
     Dosage: TEXT:0.5MG
     Route: 048
     Dates: start: 20070302, end: 20070304

REACTIONS (7)
  - ANXIETY [None]
  - CONFUSIONAL STATE [None]
  - DISTURBANCE IN ATTENTION [None]
  - IMPAIRED DRIVING ABILITY [None]
  - JUDGEMENT IMPAIRED [None]
  - PALPITATIONS [None]
  - PARANOIA [None]
